FAERS Safety Report 7128376-5 (Version None)
Quarter: 2010Q4

REPORT INFORMATION
  Report Type: 
  Country: None (occurrence: None)
  Receive Date: 20101130
  Receipt Date: 20101122
  Transmission Date: 20110411
  Serious: Yes (Other)
  Sender: FDA-Public Use
  Company Number: US-SANOFI-AVENTIS-2010SA064301

PATIENT
  Age: 87 Year
  Sex: Female
  Weight: 60.8 kg

DRUGS (12)
  1. MULTAQ [Suspect]
     Indication: ATRIAL FIBRILLATION
     Route: 048
     Dates: start: 20100409
  2. TERCONAZOLE [Suspect]
     Route: 067
     Dates: start: 20100811, end: 20100814
  3. LASIX [Concomitant]
     Dates: end: 20101101
  4. LASIX [Concomitant]
     Dates: start: 20101115
  5. POTASSIUM CHLORIDE [Concomitant]
  6. PANTOPRAZOLE [Concomitant]
  7. METOPROLOL [Concomitant]
  8. COUMADIN [Concomitant]
  9. PREMARIN [Concomitant]
     Dosage: FIVE TIMES PER WEEK
  10. ALL OTHER THERAPEUTIC PRODUCTS [Concomitant]
  11. AMIODARONE [Concomitant]
     Dates: start: 20080901
  12. PEPCID AC [Concomitant]

REACTIONS (1)
  - ATRIAL FIBRILLATION [None]
